FAERS Safety Report 5143555-4 (Version None)
Quarter: 2006Q4

REPORT INFORMATION
  Report Type: 
  Country: None (occurrence: None)
  Receive Date: 20061030
  Receipt Date: 20061019
  Transmission Date: 20070319
  Serious: Yes (Other)
  Sender: FDA-Public Use
  Company Number: TPA2006A01795

PATIENT
  Age: 63 Year
  Sex: Female
  Weight: 117.028 kg

DRUGS (3)
  1. ACTOS [Suspect]
     Indication: DIABETES MELLITUS NON-INSULIN-DEPENDENT
     Dosage: 45 MG, 1 IN 1 D, PER ORAL
     Route: 048
     Dates: start: 20040101, end: 20060901
  2. GLIPIZIDE [Concomitant]
  3. METFORMIN HCL [Suspect]

REACTIONS (5)
  - INSOMNIA [None]
  - MASS [None]
  - PRURITUS [None]
  - URTICARIA [None]
  - WEIGHT INCREASED [None]
